FAERS Safety Report 5890782-4 (Version None)
Quarter: 2008Q3

REPORT INFORMATION
  Report Type: 
  Country: None (occurrence: None)
  Receive Date: 20080918
  Receipt Date: 20080827
  Transmission Date: 20090109
  Serious: Yes (Disabling)
  Sender: FDA-Public Use
  Company Number: ENTC2008-0262

PATIENT
  Age: 66 Year
  Sex: Female

DRUGS (2)
  1. STALEVO 100 [Suspect]
     Dosage: STRENGTH 100/25/200 MG
     Route: 048
  2. COMTAN [Concomitant]

REACTIONS (1)
  - PARALYSIS [None]
